FAERS Safety Report 5492145-2 (Version None)
Quarter: 2007Q4

REPORT INFORMATION
  Report Type: 
  Country: None (occurrence: None)
  Receive Date: 20071015
  Receipt Date: 20070628
  Transmission Date: 20080405
  Serious: No
  Sender: FDA-Public Use
  Company Number: 2007SP002398

PATIENT
  Age: 70 Year
  Sex: Female
  Weight: 55.7924 kg

DRUGS (4)
  1. LUNESTA [Suspect]
     Indication: INSOMNIA
     Dosage: 4 MG; HS; ORAL
     Route: 048
     Dates: start: 20070627
  2. LAMOTRIGINE [Concomitant]
  3. CITALOPRAM [Concomitant]
  4. LORAZEPAM [Concomitant]

REACTIONS (1)
  - DIZZINESS [None]
